FAERS Safety Report 9641644 (Version 3)
Quarter: 2014Q1

REPORT INFORMATION
  Report Type: Spontaneous
  Country: US (occurrence: US)
  Receive Date: 20131023
  Receipt Date: 20140120
  Transmission Date: 20141002
  Serious: No
  Sender: FDA-Public Use
  Company Number: US-TEVA-439807USA

PATIENT
  Age: 41 Year
  Sex: Female
  Weight: 53.12 kg

DRUGS (3)
  1. PARAGARD 380A [Suspect]
     Indication: CONTRACEPTION
     Route: 015
     Dates: start: 20131014, end: 20131021
  2. PARAGARD 380A [Suspect]
     Route: 015
  3. ADDERALL [Concomitant]

REACTIONS (4)
  - Smear cervix abnormal [Unknown]
  - Abdominal pain [Recovered/Resolved]
  - Metrorrhagia [Unknown]
  - Device expulsion [Recovered/Resolved]
